FAERS Safety Report 12228580 (Version 1)
Quarter: 2016Q1

REPORT INFORMATION
  Report Type: Spontaneous
  Country: US (occurrence: None)
  Receive Date: 20160331
  Receipt Date: 20160331
  Transmission Date: 20160526
  Serious: Yes (Other)
  Sender: FDA-Public Use
  Company Number: None

PATIENT
  Age: 46 Year
  Sex: Female

DRUGS (5)
  1. ZYRTEC [Concomitant]
     Active Substance: CETIRIZINE HYDROCHLORIDE
  2. BYSTOLIC [Concomitant]
     Active Substance: NEBIVOLOL HYDROCHLORIDE
  3. TAMIFLU [Suspect]
     Active Substance: OSELTAMIVIR PHOSPHATE
     Indication: INFLUENZA
     Dosage: 10 CAPSULE(S) EVERY 12 HOURS TAKEN BY MOUTH
     Route: 048
     Dates: start: 20160328, end: 20160328
  4. IBUPROFEN. [Concomitant]
     Active Substance: IBUPROFEN
  5. EMERG-C [Concomitant]

REACTIONS (3)
  - Angioedema [None]
  - Eye swelling [None]
  - Eye irritation [None]

NARRATIVE: CASE EVENT DATE: 20160328
